FAERS Safety Report 9717481 (Version 2)
Quarter: 2013Q4

REPORT INFORMATION
  Report Type: Spontaneous
  Country: US (occurrence: US)
  Receive Date: 20131127
  Receipt Date: 20131127
  Transmission Date: 20140711
  Serious: No
  Sender: FDA-Public Use
  Company Number: US-GILEAD-2009-0019820

PATIENT
  Age: 51 Year
  Sex: Female

DRUGS (4)
  1. LETAIRIS [Suspect]
     Indication: PULMONARY HYPERTENSION
     Route: 048
     Dates: start: 20081230
  2. DIGOXIN [Concomitant]
  3. LASIX [Concomitant]
  4. KCL [Concomitant]

REACTIONS (1)
  - Tachycardia [Not Recovered/Not Resolved]
